FAERS Safety Report 9057266 (Version 1)
Quarter: 2013Q1

REPORT INFORMATION
  Report Type: Report from Study
  Country: JP (occurrence: JP)
  Receive Date: 20130131
  Receipt Date: 20130131
  Transmission Date: 20140127
  Serious: Yes (Other)
  Sender: FDA-Public Use
  Company Number: JP-GLAXOSMITHKLINE-B0860294A

PATIENT
  Age: 83 None
  Sex: Female
  Weight: 66 kg

DRUGS (10)
  1. TYKERB [Suspect]
     Indication: BREAST CANCER
     Route: 048
     Dates: start: 20100319, end: 20100902
  2. TYKERB [Suspect]
     Indication: BREAST CANCER
     Route: 048
     Dates: start: 20100918, end: 20101008
  3. XELODA [Suspect]
     Route: 048
     Dates: start: 20100319, end: 20100902
  4. XELODA [Suspect]
     Route: 048
     Dates: start: 20100918, end: 20101001
  5. SELBEX [Concomitant]
     Indication: GASTRITIS
     Route: 048
  6. TAKEPRON [Concomitant]
     Indication: GASTROOESOPHAGEAL REFLUX DISEASE
     Route: 048
  7. ZYLORIC [Concomitant]
     Indication: HYPERURICAEMIA
     Route: 048
  8. NORVASC [Concomitant]
     Indication: HYPERTENSION
     Route: 048
     Dates: end: 20100909
  9. ASTOMIN [Concomitant]
     Indication: PROPHYLAXIS
     Route: 048
     Dates: start: 20100723, end: 20100812
  10. RHYTHMY [Concomitant]
     Indication: PROPHYLAXIS
     Route: 048
     Dates: start: 20100723, end: 20100812

REACTIONS (6)
  - Pyelonephritis acute [Recovering/Resolving]
  - Paronychia [Recovering/Resolving]
  - Impetigo [Recovered/Resolved]
  - Diarrhoea [Recovered/Resolved]
  - Palmar-plantar erythrodysaesthesia syndrome [Recovering/Resolving]
  - Eczema [Recovered/Resolved]
